FAERS Safety Report 18943764 (Version 1)
Quarter: 2021Q1

REPORT INFORMATION
  Report Type: Spontaneous
  Country: US (occurrence: US)
  Receive Date: 20210226
  Receipt Date: 20210226
  Transmission Date: 20210420
  Serious: No
  Sender: FDA-Public Use
  Company Number: US-JNJFOC-20210237214

PATIENT
  Age: 39 Year
  Sex: Male
  Weight: 102.15 kg

DRUGS (3)
  1. XARELTO [Suspect]
     Active Substance: RIVAROXABAN
     Indication: THROMBOSIS PROPHYLAXIS
     Route: 048
     Dates: start: 20210212
  2. XARELTO [Suspect]
     Active Substance: RIVAROXABAN
     Route: 042
  3. LORAZEPAM. [Concomitant]
     Active Substance: LORAZEPAM
     Indication: INSOMNIA
     Route: 065

REACTIONS (6)
  - Back pain [Recovering/Resolving]
  - Incorrect route of product administration [Unknown]
  - Tremor [Recovering/Resolving]
  - Cardiovascular disorder [Recovering/Resolving]
  - Pelvic discomfort [Unknown]
  - Pain in extremity [Recovering/Resolving]

NARRATIVE: CASE EVENT DATE: 202102
